FAERS Safety Report 7714924-0 (Version None)
Quarter: 2011Q3

REPORT INFORMATION
  Report Type: 
  Country: None (occurrence: None)
  Receive Date: 20110829
  Receipt Date: 20100918
  Transmission Date: 20111222
  Serious: No
  Sender: FDA-Public Use
  Company Number: US-GLAXOSMITHKLINE-A0882747A

PATIENT
  Sex: Female

DRUGS (1)
  1. ACYCLOVIR [Suspect]
     Indication: GENITAL HERPES
     Dosage: 800MG UNKNOWN
     Route: 048

REACTIONS (11)
  - MALAISE [None]
  - ORAL HERPES [None]
  - MOUTH ULCERATION [None]
  - VOMITING [None]
  - LOSS OF EMPLOYMENT [None]
  - PYREXIA [None]
  - IMMOBILE [None]
  - HERPES SIMPLEX [None]
  - DRUG INEFFECTIVE [None]
  - INFLUENZA LIKE ILLNESS [None]
  - NERVOUS SYSTEM DISORDER [None]
